FAERS Safety Report 4276660-5 (Version None)
Quarter: 2004Q1

REPORT INFORMATION
  Report Type: 
  Country: None (occurrence: None)
  Receive Date: 20040120
  Receipt Date: 20040106
  Transmission Date: 20041129
  Serious: Yes (Disabling)
  Sender: FDA-Public Use
  Company Number: 04H-163-0246459-00

PATIENT
  Age: 77 Year
  Sex: Female
  Weight: 78.0187 kg

DRUGS (7)
  1. EPINEPHRINE [Suspect]
     Indication: VASOCONSTRICTION
     Dosage: 1/10TH OF A CC, INTRAOCULAR
     Route: 031
     Dates: start: 20031217
  2. BSS [Concomitant]
  3. FUROSEMIDE [Concomitant]
  4. CARVEDILOL [Concomitant]
  5. SPIRONOLACTONE [Concomitant]
  6. RALOXIFENE HCL [Concomitant]
  7. ACETYLSALICYLIC ACID SRT [Concomitant]

REACTIONS (5)
  - BLINDNESS UNILATERAL [None]
  - ENDOPHTHALMITIS [None]
  - RETINAL ARTERY OCCLUSION [None]
  - RETINAL VEIN OCCLUSION [None]
  - VISUAL ACUITY REDUCED [None]
